FAERS Safety Report 7686961-6 (Version None)
Quarter: 2011Q3

REPORT INFORMATION
  Report Type: 
  Country: None (occurrence: None)
  Receive Date: 20110816
  Receipt Date: 20110804
  Transmission Date: 20111222
  Serious: Yes (Other)
  Sender: FDA-Public Use
  Company Number: GB-SANOFI-AVENTIS-2011SA050151

PATIENT
  Age: 66 Year
  Sex: Female
  Weight: 75 kg

DRUGS (6)
  1. ROSUVASTATIN [Concomitant]
     Route: 065
  2. LANSOPRAZOLE [Concomitant]
     Route: 065
  3. BECLOMETHASONE DIPROPIONATE [Concomitant]
     Route: 065
  4. ASPIRIN [Concomitant]
     Route: 065
  5. SALMETEROL [Concomitant]
     Route: 065
  6. MULTAQ [Suspect]
     Route: 048
     Dates: start: 20110716, end: 20110726

REACTIONS (3)
  - ASTHMA [None]
  - DIARRHOEA [None]
  - RASH PAPULAR [None]
